FAERS Safety Report 21657852 (Version 1)
Quarter: 2022Q4

REPORT INFORMATION
  Report Type: Spontaneous
  Country: US (occurrence: None)
  Receive Date: 20221128
  Receipt Date: 20221128
  Transmission Date: 20230113
  Serious: Yes (Other)
  Sender: FDA-Public Use
  Company Number: None

PATIENT
  Age: 32 Year
  Sex: Female
  Weight: 85.5 kg

DRUGS (8)
  1. ETHINYL ESTRADIOL\ETONOGESTREL [Suspect]
     Active Substance: ETHINYL ESTRADIOL\ETONOGESTREL
  2. ALBUTEROL [Concomitant]
     Active Substance: ALBUTEROL
  3. OMEPRAZOLE [Concomitant]
     Active Substance: OMEPRAZOLE
  4. SPIRONOLACTONE [Concomitant]
     Active Substance: SPIRONOLACTONE
  5. BUPROPION [Concomitant]
     Active Substance: BUPROPION
  6. VITAMINS [Concomitant]
     Active Substance: VITAMINS
  7. vitamin c [Concomitant]
  8. VITAMIN D [Concomitant]
     Active Substance: VITAMIN D NOS

REACTIONS (6)
  - Product substitution issue [None]
  - Heavy menstrual bleeding [None]
  - Nausea [None]
  - Muscle spasms [None]
  - Thrombosis [None]
  - Blood iron decreased [None]

NARRATIVE: CASE EVENT DATE: 20221001
